FAERS Safety Report 4788143-4 (Version None)
Quarter: 2005Q3

REPORT INFORMATION
  Report Type: 
  Country: None (occurrence: None)
  Receive Date: 20050920
  Receipt Date: 20050613
  Transmission Date: 20060218
  Serious: Yes (Other)
  Sender: FDA-Public Use
  Company Number: PHEH2005US04885

PATIENT
  Age: 50 Year
  Sex: Female
  Weight: 74.4 kg

DRUGS (2)
  1. FEMARA [Suspect]
  2. ZYPREXA [Concomitant]

REACTIONS (1)
  - DEPRESSION [None]
